FAERS Safety Report 15969018 (Version 1)
Quarter: 2019Q1

REPORT INFORMATION
  Report Type: Spontaneous
  Country: CH (occurrence: CH)
  Receive Date: 20190215
  Receipt Date: 20190215
  Transmission Date: 20190418
  Serious: Yes (Death, Other)
  Sender: FDA-Public Use
  Company Number: CH-GLAXOSMITHKLINE-CH2019025266

PATIENT
  Age: 47 Year
  Sex: Female

DRUGS (21)
  1. DUSPATALIN RETARD [Concomitant]
     Indication: IRRITABLE BOWEL SYNDROME
     Dosage: 400 MG, UNK
     Route: 048
     Dates: start: 20181119
  2. VENTOLIN [Suspect]
     Active Substance: ALBUTEROL SULFATE
     Indication: CHRONIC OBSTRUCTIVE PULMONARY DISEASE
     Dosage: AS NECESSARY
     Route: 055
     Dates: start: 20181214
  3. CLARITHROMYCIN. [Interacting]
     Active Substance: CLARITHROMYCIN
     Indication: INFECTION
     Dosage: 500 MG, UNK
     Route: 048
     Dates: start: 20190120, end: 20190121
  4. PIPERACILLIN AND TAZOBACTAM [Interacting]
     Active Substance: PIPERACILLIN SODIUM\TAZOBACTAM SODIUM
     Indication: INFECTION
     Dosage: 4500 MG, UNK
     Route: 041
     Dates: start: 20190120
  5. DAFALGAN [Suspect]
     Active Substance: ACETAMINOPHEN
     Indication: PAIN
     Dosage: AS NECESSARY
     Route: 048
     Dates: start: 20181121
  6. HALOPERIDOL. [Interacting]
     Active Substance: HALOPERIDOL
     Indication: AGITATION
     Dosage: 5 MG, UNK
     Route: 048
     Dates: start: 20190120
  7. CLOPIN (CLOZAPINE) [Suspect]
     Active Substance: CLOZAPINE
     Indication: SCHIZOAFFECTIVE DISORDER
     Dosage: STARTED AT 25 MG/D THE 04.12.2018 AND INCREASED UP TO 300 MG/D THE 20.12.2018
     Route: 048
     Dates: start: 20181204, end: 20190119
  8. CIPRALEX [Interacting]
     Active Substance: ESCITALOPRAM OXALATE
     Indication: SCHIZOAFFECTIVE DISORDER
     Dosage: 10 MG, UNK
     Route: 048
  9. ATORVASTATINE [Concomitant]
     Active Substance: ATORVASTATIN
     Indication: HYPERCHOLESTEROLAEMIA
     Dosage: 20 MG, QD
     Route: 048
     Dates: start: 20181119
  10. TRANXILIUM [Concomitant]
     Active Substance: CLORAZEPATE DIPOTASSIUM
     Indication: SCHIZOAFFECTIVE DISORDER
     Dosage: 40 MG, QD
     Route: 048
     Dates: start: 20181119
  11. CALCIUM D3 (CALCIUM CARBONATE+COLECALCIFEROL) [Concomitant]
     Indication: PRODUCT USED FOR UNKNOWN INDICATION
     Dosage: 1 DF, UNK
     Route: 048
     Dates: start: 20181123
  12. CLOPIN (CLOZAPINE) [Suspect]
     Active Substance: CLOZAPINE
     Dosage: 300 MG, UNK
     Route: 048
     Dates: start: 20181204, end: 20190120
  13. TEMESTA [LORAZEPAM] [Suspect]
     Active Substance: LORAZEPAM
     Indication: SCHIZOAFFECTIVE DISORDER
     Dosage: AS NECESSARY
     Route: 048
     Dates: start: 201805
  14. SYMBICORT [Concomitant]
     Active Substance: BUDESONIDE\FORMOTEROL FUMARATE DIHYDRATE
     Indication: CHRONIC OBSTRUCTIVE PULMONARY DISEASE
     Dosage: 2 INHALATIONS/DAYS
     Route: 055
     Dates: start: 20181216
  15. BETMIGA [Suspect]
     Active Substance: MIRABEGRON
     Indication: URINARY INCONTINENCE
     Dosage: 50 MG, QD
     Route: 048
     Dates: start: 201804
  16. INDERAL [Suspect]
     Active Substance: PROPRANOLOL HYDROCHLORIDE
     Indication: TACHYCARDIA
     Dosage: 40 MG, UNK
     Route: 048
  17. METFIN [Suspect]
     Active Substance: METFORMIN HYDROCHLORIDE
     Indication: TYPE 2 DIABETES MELLITUS
     Dosage: 500 MG, UNK
     Route: 048
     Dates: start: 20181119
  18. SPASMO-URGENIN NEO [Concomitant]
     Active Substance: TROSPIUM
     Indication: URINARY INCONTINENCE
     Dosage: 40 MG, UNK
     Route: 048
     Dates: start: 20190109
  19. ZOLPIDEM [Concomitant]
     Active Substance: ZOLPIDEM\ZOLPIDEM TARTRATE
     Indication: SCHIZOAFFECTIVE DISORDER
     Dosage: AS NECESSARY
     Route: 048
     Dates: start: 20181126
  20. CERAZETTE [Concomitant]
     Indication: POLYCYSTIC OVARIES
     Dosage: 0.075 MG, QD
     Route: 048
     Dates: start: 20181130
  21. ELTROXIN [Concomitant]
     Active Substance: LEVOTHYROXINE
     Indication: HYPOTHYROIDISM
     Dosage: 75 ?G, QD
     Route: 048
     Dates: start: 201804

REACTIONS (10)
  - Oropharyngeal pain [Not Recovered/Not Resolved]
  - Multiple organ dysfunction syndrome [Fatal]
  - Cough [Not Recovered/Not Resolved]
  - Encephalopathy [Fatal]
  - Dyspnoea [Not Recovered/Not Resolved]
  - Drug interaction [Unknown]
  - Pyrexia [Not Recovered/Not Resolved]
  - Brain oedema [Fatal]
  - Agranulocytosis [Not Recovered/Not Resolved]
  - Cardiac arrest [Fatal]

NARRATIVE: CASE EVENT DATE: 201901
